FAERS Safety Report 6323996-X (Version None)
Quarter: 2009Q3

REPORT INFORMATION
  Report Type: 
  Country: None (occurrence: None)
  Receive Date: 20090824
  Receipt Date: 20090819
  Transmission Date: 20100115
  Serious: Yes (Hospitalization)
  Sender: FDA-Public Use
  Company Number: B0584543A

PATIENT
  Sex: Male

DRUGS (20)
  1. MELPHALAN HYDROCHLORIDE [Suspect]
     Indication: MULTIPLE MYELOMA
     Route: 065
     Dates: start: 20090210
  2. THALIDOMIDE [Suspect]
     Indication: MULTIPLE MYELOMA
     Dosage: 100MG PER DAY
     Route: 048
     Dates: start: 20090210
  3. PREDNISONE TAB [Suspect]
     Indication: MULTIPLE MYELOMA
     Route: 048
     Dates: start: 20090210
  4. ASPIRIN [Concomitant]
     Indication: THROMBOSIS PROPHYLAXIS
     Dosage: 50MG PER DAY
     Route: 048
  5. RAMIPRIL [Concomitant]
     Indication: HYPERTONIA
     Dosage: 5MG PER DAY
     Route: 048
  6. PANTOPRAZOLE SODIUM [Concomitant]
     Indication: PROPHYLAXIS
     Dosage: 20MG PER DAY
     Route: 048
     Dates: start: 20090210
  7. THIAMAZOL [Concomitant]
     Indication: HYPOTHYROIDISM
     Dosage: .5TAB PER DAY
     Route: 048
     Dates: start: 20070710
  8. DIAMICRON [Concomitant]
     Indication: DIABETES MELLITUS
     Dosage: 1TAB PER DAY
     Route: 048
     Dates: start: 20080927
  9. SERETIDE [Concomitant]
     Indication: CHRONIC OBSTRUCTIVE PULMONARY DISEASE
     Route: 055
     Dates: start: 20070426, end: 20090617
  10. GUTTALAX [Concomitant]
     Route: 048
     Dates: start: 20090310
  11. BERODUAL [Concomitant]
     Route: 055
     Dates: start: 20090401
  12. SPIRIVA [Concomitant]
     Indication: CHRONIC OBSTRUCTIVE PULMONARY DISEASE
     Dosage: 22.5UG PER DAY
     Route: 048
     Dates: start: 20090401
  13. LASIX [Concomitant]
     Indication: HYPERTENSION
     Dosage: 30MG PER DAY
     Route: 048
     Dates: start: 20090401
  14. NICORETTE [Concomitant]
     Route: 062
     Dates: start: 20090401
  15. PASPERTIN [Concomitant]
     Route: 048
     Dates: start: 20090507
  16. NULYTELY [Concomitant]
     Indication: CONSTIPATION
     Route: 048
     Dates: start: 20090507
  17. BUDIAR [Concomitant]
     Indication: CHRONIC OBSTRUCTIVE PULMONARY DISEASE
     Route: 055
     Dates: start: 20090618
  18. FOSAMAX [Concomitant]
     Indication: OSTEOPOROSIS
     Route: 048
     Dates: start: 20090129
  19. MARCUMAR [Concomitant]
     Indication: THROMBOSIS PROPHYLAXIS
     Route: 048
     Dates: start: 20090618
  20. TAMSULOSIN [Concomitant]
     Indication: DRUG USE FOR UNKNOWN INDICATION
     Route: 048
     Dates: start: 20090618

REACTIONS (4)
  - FEBRILE NEUTROPENIA [None]
  - NEUTROPENIC INFECTION [None]
  - PNEUMONIA [None]
  - SYNCOPE [None]
